FAERS Safety Report 9086165 (Version 1)
Quarter: 2013Q1

REPORT INFORMATION
  Report Type: Report from Study
  Country: US (occurrence: US)
  Receive Date: 20130130
  Receipt Date: 20130130
  Transmission Date: 20140127
  Serious: No
  Sender: FDA-Public Use
  Company Number: US-ABBOTT-12P-163-0986111-00

PATIENT
  Age: 52 None
  Sex: Female
  Weight: 102.15 kg

DRUGS (6)
  1. HUMIRA [Suspect]
     Indication: COLITIS ULCERATIVE
     Route: 058
     Dates: start: 201201, end: 201203
  2. HUMIRA [Suspect]
     Route: 058
     Dates: start: 20120824
  3. PREDNISONE [Concomitant]
     Indication: COLITIS ULCERATIVE
  4. IRON [Concomitant]
     Indication: MINERAL SUPPLEMENTATION
  5. ASACOL [Concomitant]
     Indication: COLITIS ULCERATIVE
  6. POTASSIUM [Concomitant]
     Indication: SUPPLEMENTATION THERAPY

REACTIONS (8)
  - Off label use [Unknown]
  - Hypersomnia [Recovered/Resolved]
  - Visual impairment [Recovered/Resolved]
  - Anaemia [Recovered/Resolved]
  - Abdominal pain upper [Recovering/Resolving]
  - Inflammation [Recovering/Resolving]
  - Gait disturbance [Recovered/Resolved]
  - Diarrhoea [Recovering/Resolving]
